FAERS Safety Report 6498753-4 (Version None)
Quarter: 2009Q4

REPORT INFORMATION
  Report Type: 
  Country: None (occurrence: None)
  Receive Date: 20091215
  Receipt Date: 20091203
  Transmission Date: 20100525
  Serious: Yes (Other)
  Sender: FDA-Public Use
  Company Number: PHHY2009BR53223

PATIENT
  Age: 4 Year
  Sex: Female

DRUGS (1)
  1. TEGRETOL [Suspect]
     Dosage: UNK
     Dates: start: 20090801

REACTIONS (1)
  - HYPOTHERMIA [None]
